FAERS Safety Report 19569633 (Version 6)
Quarter: 2022Q1

REPORT INFORMATION
  Report Type: Report from Study
  Country: PL (occurrence: PL)
  Receive Date: 20210716
  Receipt Date: 20220118
  Transmission Date: 20220423
  Serious: Yes (Hospitalization)
  Sender: FDA-Public Use
  Company Number: PL-ASTRAZENECA-2021A405604

PATIENT
  Age: 57 Year
  Sex: Female

DRUGS (12)
  1. TRASTUZUMAB DERUXTECAN [Suspect]
     Active Substance: TRASTUZUMAB DERUXTECAN
     Indication: Triple negative breast cancer
     Dosage: 378 MG, ONCE EVERY 3 WK
     Route: 042
     Dates: start: 20210413, end: 20210804
  2. DURVALUMAB [Suspect]
     Active Substance: DURVALUMAB
     Indication: Triple negative breast cancer
     Dosage: 1500 MG, ONCE EVERY 3 WK
     Route: 042
     Dates: start: 20210413, end: 20210413
  3. DURVALUMAB [Suspect]
     Active Substance: DURVALUMAB
     Dosage: 1500 MG, ONCE EVERY 3 WK
     Route: 042
     Dates: start: 20210514, end: 20210514
  4. DURVALUMAB [Suspect]
     Active Substance: DURVALUMAB
     Dosage: 1500 MG, ONCE EVERY 3 WK
     Route: 042
     Dates: start: 20210602, end: 20210602
  5. DURVALUMAB [Suspect]
     Active Substance: DURVALUMAB
     Dosage: 1500 MG, ONCE EVERY 3 WK
     Route: 042
     Dates: start: 20210623, end: 20210623
  6. DURVALUMAB [Suspect]
     Active Substance: DURVALUMAB
     Dosage: 1500 MG, ONCE EVERY 3 WK
     Route: 042
     Dates: start: 20210714, end: 20210714
  7. DURVALUMAB [Suspect]
     Active Substance: DURVALUMAB
     Dosage: 1500 MG, ONCE EVERY 3 WK
     Route: 042
     Dates: start: 20210804, end: 20210804
  8. ACETAMINOPHEN [Concomitant]
     Active Substance: ACETAMINOPHEN
     Indication: Bacterial infection
     Route: 048
     Dates: start: 20210428, end: 20210505
  9. BISOPROLOL [Concomitant]
     Active Substance: BISOPROLOL
     Indication: Hypertension
     Dosage: 5 MG
     Route: 048
  10. ESCITIL [Concomitant]
     Indication: Depression
     Dosage: 10 MG
     Route: 048
  11. TRAZODONE HYDROCHLORIDE [Concomitant]
     Active Substance: TRAZODONE HYDROCHLORIDE
     Indication: Depression
     Dosage: 75 MG
     Route: 048
  12. EUTHYROX [Concomitant]
     Active Substance: LEVOTHYROXINE SODIUM
     Indication: Depression
     Dosage: 88 MG
     Route: 048
     Dates: start: 201803

REACTIONS (1)
  - Pseudomonas infection [Recovered/Resolved]

NARRATIVE: CASE EVENT DATE: 20210505
